FAERS Safety Report 9665453 (Version 1)
Quarter: 2013Q4

REPORT INFORMATION
  Report Type: Spontaneous
  Country: US (occurrence: None)
  Receive Date: 20131031
  Receipt Date: 20131031
  Transmission Date: 20140711
  Serious: Yes (Hospitalization)
  Sender: FDA-Public Use
  Company Number: None

PATIENT
  Age: 59 Year
  Sex: Male
  Weight: 113 kg

DRUGS (21)
  1. NAFCILLIN [Suspect]
     Indication: BACTERAEMIA
     Route: 042
     Dates: start: 20110810, end: 20110825
  2. NAFCILLIN [Suspect]
     Indication: STAPHYLOCOCCAL INFECTION
     Route: 042
     Dates: start: 20110810, end: 20110825
  3. ACETAMINOPHEN [Concomitant]
  4. ALLOPURINOL [Concomitant]
  5. BACLOFEN [Concomitant]
  6. CEFEPIME [Concomitant]
  7. DIAZEPAM [Concomitant]
  8. DOCUSATE [Concomitant]
  9. FOLIC ACID [Concomitant]
  10. HEPARIN [Concomitant]
  11. INSULIN ASPART [Concomitant]
  12. LACTULOSE [Concomitant]
  13. LANSOPRAZOLE [Concomitant]
  14. MULTIVITAMIN [Concomitant]
  15. OXAZEPAM [Concomitant]
  16. OXYCODONE [Concomitant]
  17. POLYETHYLENE GLYCOL [Concomitant]
  18. RANITIDINE [Suspect]
  19. SENNA [Suspect]
  20. THIAMINE [Suspect]
  21. VANCOMYCIN [Concomitant]

REACTIONS (1)
  - Renal impairment [None]
